FAERS Safety Report 8408041-4 (Version None)
Quarter: 2012Q2

REPORT INFORMATION
  Report Type: 
  Country: None (occurrence: None)
  Receive Date: 20120529
  Receipt Date: 20060426
  Transmission Date: 20120825
  Serious: Yes (Life-Threatening, Hospitalization)
  Sender: FDA-Public Use
  Company Number: 02100-JPN-06-0132

PATIENT
  Age: 50 Year
  Sex: Female
  Weight: 48 kg

DRUGS (7)
  1. SELBEX (TEPRENONE) CAPSULE [Concomitant]
  2. GASTER (FAMOTIDINE) TABLE [Concomitant]
  3. PLETAL [Suspect]
     Indication: PERIPHERAL ISCHAEMIA
     Dosage: 100 MG, BID, ORAL
     Route: 048
     Dates: start: 20060308, end: 20060322
  4. THEO-DUR [Concomitant]
  5. MILLIS (NITROGLYCERIN) TAPE (INCLUDING POULTICE) [Concomitant]
  6. BLOPRESS (CANDESARTAN CILEXETIL) TABLET [Concomitant]
  7. NORVASC [Concomitant]

REACTIONS (8)
  - DYSPNOEA [None]
  - RESPIRATORY TRACT HAEMORRHAGE [None]
  - THROMBOCYTOPENIA [None]
  - BRADYCARDIA [None]
  - DRUG HYPERSENSITIVITY [None]
  - DISSEMINATED INTRAVASCULAR COAGULATION [None]
  - CARDIO-RESPIRATORY ARREST [None]
  - ASTHMA [None]
